FAERS Safety Report 9103865 (Version 1)
Quarter: 2013Q1

REPORT INFORMATION
  Report Type: Spontaneous
  Country: US (occurrence: US)
  Receive Date: 20130219
  Receipt Date: 20130219
  Transmission Date: 20140127
  Serious: No
  Sender: FDA-Public Use
  Company Number: US-SANOFI-AVENTIS-2012SA033735

PATIENT
  Sex: Female

DRUGS (1)
  1. GLYBURIDE [Suspect]
     Route: 065
     Dates: start: 201111

REACTIONS (1)
  - Diarrhoea [Unknown]
